FAERS Safety Report 17368936 (Version 1)
Quarter: 2020Q1

REPORT INFORMATION
  Report Type: Spontaneous
  Country: AT (occurrence: AT)
  Receive Date: 20200204
  Receipt Date: 20200204
  Transmission Date: 20200409
  Serious: Yes (Other)
  Sender: FDA-Public Use
  Company Number: AT-BAUSCH-BL-2020-002465

PATIENT
  Sex: Male

DRUGS (9)
  1. CYCLOPHOSPHAMID [Suspect]
     Active Substance: CYCLOPHOSPHAMIDE
     Indication: BURKITT^S LYMPHOMA
     Dosage: GMALL PROTOCOLL
     Route: 065
     Dates: start: 201807
  2. CYTARABIN [Suspect]
     Active Substance: CYTARABINE
     Indication: BURKITT^S LYMPHOMA
     Dosage: GMALL PROTOCOLL
     Route: 065
     Dates: start: 201807
  3. DEXAMETHASONE. [Suspect]
     Active Substance: DEXAMETHASONE
     Indication: BURKITT^S LYMPHOMA
     Dosage: GMALL PROTOCOLL
     Route: 065
     Dates: start: 201807
  4. PREDNISOLONE. [Suspect]
     Active Substance: PREDNISOLONE
     Indication: BURKITT^S LYMPHOMA
     Dosage: GMALL PROTOCOLL
     Route: 065
     Dates: start: 201807
  5. MABTHERA [Suspect]
     Active Substance: RITUXIMAB
     Indication: BURKITT^S LYMPHOMA
     Dosage: GMALL PROTOCOLL
     Route: 065
     Dates: start: 201807
  6. ETOPOSID [Suspect]
     Active Substance: ETOPOSIDE
     Indication: BURKITT^S LYMPHOMA
     Dosage: GMALL PROTOCOLL
     Route: 065
     Dates: start: 201807
  7. METHOTREXAT [METHOTREXATE] [Suspect]
     Active Substance: METHOTREXATE
     Indication: BURKITT^S LYMPHOMA
     Dosage: GMALL PROTOCOLL
     Route: 065
     Dates: start: 201807
  8. VINCRISTIN [Suspect]
     Active Substance: VINCRISTINE
     Indication: BURKITT^S LYMPHOMA
     Dosage: GMALL PROTOCOLL
     Route: 065
     Dates: start: 201807
  9. IFOSFAMIDE. [Suspect]
     Active Substance: IFOSFAMIDE
     Indication: BURKITT^S LYMPHOMA
     Dosage: GMALL PROTOCOLL
     Route: 065
     Dates: start: 201807

REACTIONS (3)
  - Oropharyngeal candidiasis [Unknown]
  - Mucosal inflammation [Unknown]
  - Crohn^s disease [Unknown]

NARRATIVE: CASE EVENT DATE: 20180925
